FAERS Safety Report 9186201 (Version 1)
Quarter: 2013Q1

REPORT INFORMATION
  Report Type: Spontaneous
  Country: US (occurrence: US)
  Receive Date: 20130325
  Receipt Date: 20130325
  Transmission Date: 20140127
  Serious: No
  Sender: FDA-Public Use
  Company Number: US-ASTRAZENECA-2013SE16155

PATIENT
  Age: 47 Year
  Sex: Female
  Weight: 113.4 kg

DRUGS (2)
  1. NEXIUM [Suspect]
     Indication: GASTROOESOPHAGEAL REFLUX DISEASE
     Dosage: UNKNOWN, DAILY
     Route: 048
     Dates: start: 2002, end: 2002
  2. NEXIUM [Suspect]
     Indication: HIATUS HERNIA
     Dosage: UNKNOWN, DAILY
     Route: 048
     Dates: start: 2002, end: 2002

REACTIONS (4)
  - Gastrooesophageal reflux disease [Unknown]
  - Diarrhoea [Unknown]
  - Incorrect storage of drug [Unknown]
  - Intentional drug misuse [Unknown]
